FAERS Safety Report 20371635 (Version 1)
Quarter: 2022Q1

REPORT INFORMATION
  Report Type: Spontaneous
  Country: US (occurrence: None)
  Receive Date: 20220124
  Receipt Date: 20220124
  Transmission Date: 20220423
  Serious: Yes (Death)
  Sender: FDA-Public Use
  Company Number: None

PATIENT
  Age: 71 Year
  Sex: Female

DRUGS (14)
  1. PRALUENT [Suspect]
     Active Substance: ALIROCUMAB
     Indication: Hyperlipidaemia
     Dosage: FREQUENCY : EVERY OTHER WEEK;?
     Route: 058
  2. ELIQUIS [Concomitant]
     Active Substance: APIXABAN
  3. POTASSIUM CHLORIDE [Concomitant]
     Active Substance: POTASSIUM CHLORIDE
  4. VITAMIN D [Concomitant]
     Active Substance: VITAMIN D NOS
  5. ALLOPURINOL [Concomitant]
  6. BUMETANIDE [Concomitant]
  7. CARVEDILOL [Concomitant]
     Active Substance: CARVEDILOL
  8. CLONIDINE [Concomitant]
     Active Substance: CLONIDINE
  9. IMDUR [Concomitant]
     Active Substance: ISOSORBIDE MONONITRATE
  10. LEVETIRACETAM [Concomitant]
     Active Substance: LEVETIRACETAM
  11. LEVOTHYROXINE [Concomitant]
     Active Substance: LEVOTHYROXINE
  12. METOLAZONE [Concomitant]
     Active Substance: METOLAZONE
  13. NOVOLOG FLEXPEN [Concomitant]
  14. OXYBUTYNIN [Concomitant]
     Active Substance: OXYBUTYNIN

REACTIONS (1)
  - Death [None]

NARRATIVE: CASE EVENT DATE: 20211222
